FAERS Safety Report 6522283-4 (Version None)
Quarter: 2009Q4

REPORT INFORMATION
  Report Type: 
  Country: None (occurrence: None)
  Receive Date: 20091230
  Receipt Date: 20091222
  Transmission Date: 20100525
  Serious: Yes (Congenital Anomaly)
  Sender: FDA-Public Use
  Company Number: A0679387A

PATIENT
  Sex: Female

DRUGS (1)
  1. PAXIL [Suspect]
     Indication: DEPRESSION
     Dosage: 20MG PER DAY

REACTIONS (8)
  - ATRIAL SEPTAL DEFECT [None]
  - CARDIAC DISORDER [None]
  - CONGENITAL ANOMALY [None]
  - DRUG EXPOSURE DURING PREGNANCY [None]
  - HEART DISEASE CONGENITAL [None]
  - MULTIPLE CONGENITAL ABNORMALITIES [None]
  - PERSISTENT FOETAL CIRCULATION [None]
  - PULMONARY ARTERY STENOSIS CONGENITAL [None]
